FAERS Safety Report 7753058-6 (Version None)
Quarter: 2011Q3

REPORT INFORMATION
  Report Type: 
  Country: None (occurrence: None)
  Receive Date: 20110915
  Receipt Date: 20110907
  Transmission Date: 20111222
  Serious: Yes (Hospitalization)
  Sender: FDA-Public Use
  Company Number: JP-SANOFI-AVENTIS-2011SA058783

PATIENT
  Sex: Female

DRUGS (2)
  1. DIGITALIS TAB [Suspect]
     Route: 065
  2. LASIX [Suspect]
     Route: 065

REACTIONS (4)
  - CORONARY ARTERY STENOSIS [None]
  - CONDITION AGGRAVATED [None]
  - CHEST PAIN [None]
  - CARDIAC MURMUR [None]
